FAERS Safety Report 7238661-4 (Version None)
Quarter: 2011Q1

REPORT INFORMATION
  Report Type: 
  Country: None (occurrence: None)
  Receive Date: 20110121
  Receipt Date: 20110117
  Transmission Date: 20110831
  Serious: Yes (Death, Congenital Anomaly, Other)
  Sender: FDA-Public Use
  Company Number: PHHY2011ZA03950

PATIENT
  Sex: Male

DRUGS (2)
  1. WARFARIN [Suspect]
     Dosage: UNK
     Route: 064
  2. HEPARIN [Suspect]

REACTIONS (11)
  - ASTROCYTOMA [None]
  - STILLBIRTH [None]
  - CONGENITAL MUSCULOSKELETAL ANOMALY [None]
  - DEVELOPMENTAL DELAY [None]
  - BONE DISORDER [None]
  - SUBARACHNOID HAEMORRHAGE NEONATAL [None]
  - FOETAL WARFARIN SYNDROME [None]
  - CEREBRAL HAEMORRHAGE [None]
  - NOSE DEFORMITY [None]
  - LARGE FOR DATES BABY [None]
  - MATERNAL DRUGS AFFECTING FOETUS [None]
